FAERS Safety Report 4775322-5 (Version None)
Quarter: 2005Q3

REPORT INFORMATION
  Report Type: 
  Country: None (occurrence: None)
  Receive Date: 20050914
  Receipt Date: 20050310
  Transmission Date: 20060218
  Serious: Yes (Death)
  Sender: FDA-Public Use
  Company Number: 163-20785-05030275

PATIENT
  Age: 33 Year
  Sex: Female

DRUGS (1)
  1. THALOMID [Suspect]
     Indication: METASTATIC MALIGNANT MELANOMA
     Dosage: 50 MG, DAILY, ORAL
     Route: 048
     Dates: start: 20041222, end: 20050102

REACTIONS (1)
  - DISEASE PROGRESSION [None]
